FAERS Safety Report 9548288 (Version 1)
Quarter: 2013Q2

REPORT INFORMATION
  Report Type: Spontaneous
  Country: US (occurrence: None)
  Receive Date: 20130524
  Receipt Date: 20130524
  Transmission Date: 20140414
  Serious: No
  Sender: FDA-Public Use
  Company Number: PHHY2012US113617

PATIENT
  Age: 58 Year
  Sex: Female

DRUGS (1)
  1. GILENYA (FINGOLIMOD) CAPSULE, 0.5MG [Suspect]
     Indication: MULTIPLE SCLEROSIS
     Route: 048
     Dates: start: 20121001

REACTIONS (10)
  - Bladder disorder [None]
  - Speech disorder [None]
  - Balance disorder [None]
  - Feeling abnormal [None]
  - Pain in extremity [None]
  - Hypoaesthesia [None]
  - Heart rate increased [None]
  - Visual impairment [None]
  - Headache [None]
  - Vision blurred [None]
